FAERS Safety Report 8071449-3 (Version None)
Quarter: 2012Q1

REPORT INFORMATION
  Report Type: 
  Country: None (occurrence: None)
  Receive Date: 20120125
  Receipt Date: 20120112
  Transmission Date: 20120608
  Serious: Yes (Other)
  Sender: FDA-Public Use
  Company Number: NZ-MYLANLABS-2012S1000762

PATIENT
  Age: 61 Year
  Sex: Female

DRUGS (6)
  1. METOPROLOL TARTRATE [Suspect]
     Indication: CARDIAC DISORDER
     Route: 048
     Dates: start: 20111216
  2. PREDNISOLONE [Concomitant]
     Indication: PRODUCT USED FOR UNKNOWN INDICATION
     Route: 048
  3. AMLODIPINE [Concomitant]
     Indication: PRODUCT USED FOR UNKNOWN INDICATION
     Route: 048
  4. PRILOSEC [Concomitant]
     Indication: PRODUCT USED FOR UNKNOWN INDICATION
     Route: 048
  5. METOPROLOL TARTRATE [Suspect]
     Indication: BLOOD PRESSURE INCREASED
     Route: 048
     Dates: start: 20111216
  6. METOPROLOL TARTRATE [Concomitant]
     Indication: BLOOD PRESSURE INCREASED
     Route: 048
     Dates: end: 20111215

REACTIONS (3)
  - PRURITUS [None]
  - FORMICATION [None]
  - VISUAL ACUITY REDUCED [None]
